FAERS Safety Report 4619162-6 (Version None)
Quarter: 2005Q1

REPORT INFORMATION
  Report Type: 
  Country: None (occurrence: None)
  Receive Date: 20050325
  Receipt Date: 20050315
  Transmission Date: 20050727
  Serious: Yes (Death, Congenital Anomaly)
  Sender: FDA-Public Use
  Company Number: BE-GLAXOSMITHKLINE-B0375805A

PATIENT
  Sex: Male

DRUGS (1)
  1. ZYBAN [Suspect]
     Indication: SMOKING CESSATION THERAPY

REACTIONS (4)
  - ABORTION INDUCED [None]
  - ASPHYXIATING THORACIC DYSTROPHY [None]
  - DRUG EXPOSURE DURING PREGNANCY [None]
  - LIMB DEFORMITY [None]
